FAERS Safety Report 5447632-X (Version None)
Quarter: 2007Q3

REPORT INFORMATION
  Report Type: 
  Country: None (occurrence: None)
  Receive Date: 20070910
  Receipt Date: 20070830
  Transmission Date: 20080115
  Serious: Yes (Death, Hospitalization)
  Sender: FDA-Public Use
  Company Number: UA-ROCHE-514722

PATIENT
  Age: 62 Year
  Sex: Female
  Weight: 74 kg

DRUGS (2)
  1. CAPECITABINE [Suspect]
     Route: 048
     Dates: start: 20070529, end: 20070829
  2. BLINDED BEVACIZUMAB [Suspect]
     Dosage: DOSE BLINDED LOT NUMBERS OF BEVACIZUMAB/PLACEBO WERE REPORTED AS 79171 AND 79173
     Route: 042
     Dates: start: 20070529, end: 20070822

REACTIONS (9)
  - ACUTE RESPIRATORY FAILURE [None]
  - BREAST CANCER [None]
  - LIVER DISORDER [None]
  - MALIGNANT NEOPLASM PROGRESSION [None]
  - METASTASES TO PLEURA [None]
  - METASTASIS [None]
  - PERICARDIAL DISEASE [None]
  - PULMONARY EMBOLISM [None]
  - RESPIRATORY FAILURE [None]
